FAERS Safety Report 8327148-3 (Version None)
Quarter: 2012Q2

REPORT INFORMATION
  Report Type: 
  Country: None (occurrence: None)
  Receive Date: 20120501
  Receipt Date: 20120419
  Transmission Date: 20120825
  Serious: Yes (Other)
  Sender: FDA-Public Use
  Company Number: US-BAXTER-2012BAX003539

PATIENT
  Sex: Male

DRUGS (4)
  1. SOLIRIS [Suspect]
  2. COUMADIN [Suspect]
     Route: 065
  3. HEPARIN SODIUM [Suspect]
     Route: 065
  4. SOLIRIS [Suspect]
     Route: 042
     Dates: start: 20120306, end: 20120306

REACTIONS (7)
  - HAEMOPTYSIS [None]
  - RED BLOOD CELL SCHISTOCYTES PRESENT [None]
  - HAEMOGLOBIN DECREASED [None]
  - EPISTAXIS [None]
  - INTRACARDIAC THROMBUS [None]
  - VENA CAVA THROMBOSIS [None]
  - PLATELET COUNT DECREASED [None]
